FAERS Safety Report 18246240 (Version 2)
Quarter: 2020Q3

REPORT INFORMATION
  Report Type: Spontaneous
  Country: US (occurrence: US)
  Receive Date: 20200909
  Receipt Date: 20200918
  Transmission Date: 20201103
  Serious: No
  Sender: FDA-Public Use
  Company Number: US-BAYER-2020-191330

PATIENT
  Sex: Female

DRUGS (1)
  1. MIRENA [Suspect]
     Active Substance: LEVONORGESTREL
     Indication: CONTRACEPTION
     Dosage: 20 ?G PER DAY CONTINUOUSLY
     Route: 015
     Dates: start: 2007, end: 2020

REACTIONS (6)
  - Vaginal haemorrhage [None]
  - Abdominal pain lower [None]
  - Device use issue [Not Recovered/Not Resolved]
  - Hypomenorrhoea [None]
  - Amenorrhoea [Recovered/Resolved]
  - Ovarian cyst [Recovered/Resolved]

NARRATIVE: CASE EVENT DATE: 2008
